FAERS Safety Report 23265823 (Version 1)
Quarter: 2023Q4

REPORT INFORMATION
  Report Type: Spontaneous
  Country: US (occurrence: US)
  Receive Date: 20231206
  Receipt Date: 20231206
  Transmission Date: 20240110
  Serious: No
  Sender: FDA-Public Use
  Company Number: US-CELLTRION INC.-2023US021806

PATIENT

DRUGS (2)
  1. TRUXIMA [Suspect]
     Active Substance: RITUXIMAB-ABBS
     Indication: Chronic lymphocytic leukaemia refractory
     Dosage: 800 MG, EVERY 28 DAYS
  2. TRUXIMA [Suspect]
     Active Substance: RITUXIMAB-ABBS
     Dosage: 800 MG, EVERY 28 DAYS
     Dates: start: 20231016

REACTIONS (4)
  - Unevaluable event [Unknown]
  - Chills [Unknown]
  - Malaise [Unknown]
  - Taste disorder [Unknown]
